FAERS Safety Report 8953599 (Version 2)
Quarter: 2012Q4

REPORT INFORMATION
  Report Type: 
  Country: CA (occurrence: CA)
  Receive Date: 20121206
  Receipt Date: 20121213
  Transmission Date: 20130627
  Serious: Yes (Other)
  Sender: FDA-Public Use
  Company Number: CA-PFIZER INC-2012283973

PATIENT
  Age: 76 Year
  Sex: Female
  Weight: 79.37 kg

DRUGS (15)
  1. LYRICA [Suspect]
     Indication: SPINAL STENOSIS NOS
     Dosage: 75 mg, 1x/day
     Dates: start: 20121029
  2. LYRICA [Suspect]
     Dosage: 150 mg, 1x/day
     Dates: end: 20121109
  3. LOVENOX [Concomitant]
     Indication: DVT PROPHYLAXIS
     Dosage: UNK
  4. COUMADIN [Concomitant]
     Indication: DVT PROPHYLAXIS
     Dosage: UNK
  5. CARBAMAZEPINE [Concomitant]
     Indication: EPILEPTIC SEIZURE
     Dosage: 200 mg (1 and half tab)  twice daily
  6. HYDROCHLOROTHIAZIDE [Concomitant]
     Indication: DIURETIC THERAPY
     Dosage: 25 mg, 1x/day
  7. ADALAT XL [Concomitant]
     Indication: BLOOD PRESSURE HIGH
     Dosage: 60 mg, 1x/day
  8. ATENOLOL [Concomitant]
     Indication: BLOOD PRESSURE HIGH
     Dosage: 50 mg, 1x/day
  9. OMEPRAZOLE [Concomitant]
     Indication: ESOPHAGEAL ACID REFLUX
     Dosage: 20 mg, 1x/day
  10. ATORVASTATIN [Concomitant]
     Indication: CHOLESTEROL
     Dosage: 20 mg, 1x/day
  11. HYDROMORPHONE [Concomitant]
     Indication: PAIN RELIEF
     Dosage: 3 mg, 2 caps in AM and 2 in PM
     Dates: start: 201210
  12. OXYCOCET [Concomitant]
     Indication: PAIN RELIEF
     Dosage: 1-2 tab every 4-6 hours as needed
     Dates: start: 20121030
  13. GLUCOSAMINE SULFATE [Concomitant]
     Indication: PAIN RELIEF
     Dosage: 500 mg, 3x/day
  14. GLUCOSAMINE SULFATE [Concomitant]
     Indication: JOINT DISORDER
  15. MULTIVITAMINS [Concomitant]
     Dosage: UNK

REACTIONS (4)
  - Tremor [Recovered/Resolved]
  - Fall [Recovered/Resolved]
  - Movement disorder [Recovered/Resolved]
  - Drug ineffective [Unknown]
